FAERS Safety Report 19857185 (Version 1)
Quarter: 2021Q3

REPORT INFORMATION
  Report Type: Spontaneous
  Country: US (occurrence: US)
  Receive Date: 20210920
  Receipt Date: 20210920
  Transmission Date: 20211014
  Serious: No
  Sender: FDA-Public Use
  Company Number: US-TAKEDA-2021TUS056186

PATIENT
  Sex: Male
  Weight: 151 kg

DRUGS (1)
  1. HYQVIA [Suspect]
     Active Substance: HUMAN IMMUNOGLOBULIN G\HYALURONIDASE RECOMBINANT HUMAN
     Indication: ACQUIRED IMMUNODEFICIENCY SYNDROME
     Dosage: 60 GRAM, MONTHLY
     Route: 058
     Dates: start: 2020

REACTIONS (1)
  - Immunoglobulins decreased [Unknown]
